FAERS Safety Report 4950980-0 (Version None)
Quarter: 2006Q1

REPORT INFORMATION
  Report Type: 
  Country: None (occurrence: None)
  Receive Date: 20060315
  Receipt Date: 20060224
  Transmission Date: 20060701
  Serious: Yes (Other)
  Sender: FDA-Public Use
  Company Number: GB200602005097

PATIENT
  Age: 52 Year
  Sex: Male

DRUGS (6)
  1. HUMALOG MIX 75/25 [Suspect]
     Indication: DIABETES MELLITUS
     Dosage: 18 U SUBCUTANEOUS
     Route: 058
     Dates: start: 20060125, end: 20060127
  2. ATENOLOL [Concomitant]
  3. IRBESARTAN [Concomitant]
  4. AMLODIPINE [Concomitant]
  5. GLIBENCLAMIDE [Concomitant]
  6. RAMIPRIL [Concomitant]

REACTIONS (4)
  - ABASIA [None]
  - OEDEMA PERIPHERAL [None]
  - SWELLING FACE [None]
  - VISUAL DISTURBANCE [None]
